FAERS Safety Report 5923192-1 (Version None)
Quarter: 2008Q4

REPORT INFORMATION
  Report Type: 
  Country: None (occurrence: None)
  Receive Date: 20081015
  Receipt Date: 20080930
  Transmission Date: 20090506
  Serious: Yes (Hospitalization)
  Sender: FDA-Public Use
  Company Number: 2008S1017720

PATIENT
  Sex: Male

DRUGS (5)
  1. LEVODOPA (LEVODOPA) [Suspect]
     Indication: PARKINSON'S DISEASE
  2. ROPINIROLE [Suspect]
     Indication: PARKINSON'S DISEASE
     Dosage: 3 MG; DAILY;
  3. CABERGOLINE [Suspect]
     Indication: PARKINSON'S DISEASE
     Dosage: 4 MG; DAILY;
  4. CLOZAPINE [Concomitant]
  5. LORAZEPAM [Concomitant]

REACTIONS (11)
  - ABNORMAL BEHAVIOUR [None]
  - AGGRESSION [None]
  - DOPAMINE DYSREGULATION SYNDROME [None]
  - ECONOMIC PROBLEM [None]
  - HYPOMANIA [None]
  - IMPULSIVE BEHAVIOUR [None]
  - IRRITABILITY [None]
  - PATHOLOGICAL GAMBLING [None]
  - PERSONALITY DISORDER [None]
  - PSYCHOSEXUAL DISORDER [None]
  - SOCIAL PROBLEM [None]
